FAERS Safety Report 7412996-4 (Version None)
Quarter: 2011Q2

REPORT INFORMATION
  Report Type: 
  Country: None (occurrence: None)
  Receive Date: 20110413
  Receipt Date: 20110404
  Transmission Date: 20111010
  Serious: Yes (Disabling, Other)
  Sender: FDA-Public Use
  Company Number: PHHY2011NO26746

PATIENT
  Sex: Male

DRUGS (2)
  1. ISOTRETINOIN [Interacting]
     Indication: ACNE
     Dosage: 80 MG, QD
     Route: 048
     Dates: start: 20091124, end: 20100414
  2. AMOXICILLIN [Suspect]
     Indication: LOCALISED INFECTION
     Dosage: 250 MG, TID
     Route: 048
     Dates: start: 20100402, end: 20100406

REACTIONS (2)
  - TINNITUS [None]
  - DRUG INTERACTION [None]
